FAERS Safety Report 6075391-9 (Version None)
Quarter: 2009Q1

REPORT INFORMATION
  Report Type: 
  Country: None (occurrence: None)
  Receive Date: 20090212
  Receipt Date: 20090204
  Transmission Date: 20090719
  Serious: Yes (Hospitalization)
  Sender: FDA-Public Use
  Company Number: US-WYE-H08072309

PATIENT
  Age: 68 Year
  Sex: Female
  Weight: 96.3 kg

DRUGS (2)
  1. TEMSIROLIMUS [Suspect]
     Indication: MULTIPLE MYELOMA
     Dosage: 25MG DAYS 1,8,15,22,29 Q35
  2. BORTEZOMIB [Concomitant]
     Indication: MULTIPLE MYELOMA
     Dosage: 1.6 MG/M^2 DAYS 1,8,15,22 Q35

REACTIONS (4)
  - CLOSTRIDIAL INFECTION [None]
  - DEHYDRATION [None]
  - DIARRHOEA [None]
  - PLATELET COUNT DECREASED [None]
